FAERS Safety Report 10064006 (Version 2)
Quarter: 2014Q2

REPORT INFORMATION
  Report Type: Spontaneous
  Country: FR (occurrence: FR)
  Receive Date: 20140408
  Receipt Date: 20140408
  Transmission Date: 20141212
  Serious: Yes (Life-Threatening, Hospitalization)
  Sender: FDA-Public Use
  Company Number: PHHY2014FR039155

PATIENT
  Age: 66 Year
  Sex: Male

DRUGS (19)
  1. FUROSEMIDE SANDOZ [Suspect]
     Indication: HYPERTENSION
     Dosage: 4 DF, QD
     Route: 048
     Dates: end: 20131125
  2. OLMETEC [Interacting]
     Indication: HYPERTENSION
     Dosage: 1 DF, QD
     Route: 048
     Dates: start: 201309, end: 20131125
  3. PROFENID [Interacting]
     Indication: PAIN
     Dosage: 1 DF, Q8H
     Route: 048
     Dates: start: 20131123, end: 20131125
  4. HYPERIUM [Concomitant]
     Indication: HYPERTENSION
     Route: 048
  5. DOLIPRANE [Concomitant]
     Indication: PAIN
     Route: 048
  6. TOPALGIC LP [Concomitant]
     Indication: PAIN
     Dosage: 1 DF, BID
     Route: 048
     Dates: start: 20131123, end: 20131125
  7. VERAPAMIL TEVA [Concomitant]
     Indication: HYPERTENSION
     Dosage: 1 DF, QD
     Route: 048
     Dates: end: 20131125
  8. ATORVASTATINE TEVA [Concomitant]
     Indication: CARDIAC FAILURE CONGESTIVE
     Dosage: 1 DF, QD
     Route: 048
     Dates: end: 20131125
  9. LEVEMIR [Concomitant]
     Indication: TYPE 2 DIABETES MELLITUS
     Dosage: 48 IU, QD
     Route: 058
  10. ALLOPURINOL TEVA [Concomitant]
     Indication: GOUTY ARTHRITIS
     Dosage: 1 DF, QD
     Route: 048
     Dates: end: 20131125
  11. METFORMINE TEVA [Concomitant]
     Indication: TYPE 2 DIABETES MELLITUS
     Dosage: 4 DF, QD
     Route: 048
     Dates: end: 20131125
  12. KEFANDOL [Concomitant]
     Dosage: 750 MG, Q6H
     Route: 042
     Dates: start: 20131121, end: 20131123
  13. MORPHINE RENAUDIN [Concomitant]
     Indication: PAIN
     Dosage: 1 DF, QD
     Route: 042
     Dates: start: 20131121, end: 20131123
  14. DROLEPTAN [Concomitant]
     Route: 042
     Dates: start: 20131121, end: 20131123
  15. PERFALGAN [Concomitant]
     Indication: PAIN
     Dosage: 1 G, Q6H
     Route: 042
     Dates: start: 20131121, end: 20131123
  16. LOVENOX [Concomitant]
     Dosage: 1 DF, QD
     Route: 058
     Dates: start: 20131121, end: 20131125
  17. REPAGLINIDE TEVA [Concomitant]
     Indication: TYPE 2 DIABETES MELLITUS
     Dosage: 2 MG, QD
     Route: 048
     Dates: end: 20131125
  18. NOVONORM [Concomitant]
     Dosage: 1 DF, TID
     Dates: end: 20131125
  19. CELIPROLOL TEVA [Concomitant]
     Dates: end: 20131125

REACTIONS (4)
  - Renal failure acute [Recovered/Resolved with Sequelae]
  - Bradycardia [Recovered/Resolved]
  - Renal tubular necrosis [Recovered/Resolved]
  - Hyperkalaemia [Recovered/Resolved]
